FAERS Safety Report 17474639 (Version 1)
Quarter: 2020Q1

REPORT INFORMATION
  Report Type: Spontaneous
  Country: US (occurrence: US)
  Receive Date: 20200228
  Receipt Date: 20200228
  Transmission Date: 20200409
  Serious: Yes (Other)
  Sender: FDA-Public Use
  Company Number: US-009507513-2002USA010539

PATIENT
  Age: 62 Year
  Sex: Male

DRUGS (2)
  1. CUBICIN [Suspect]
     Active Substance: DAPTOMYCIN
     Indication: ENTEROCOCCAL INFECTION
     Dosage: 10 MILLIGRAM/KILOGRAM, 8 WEEKS
  2. CUBICIN [Suspect]
     Active Substance: DAPTOMYCIN
     Indication: MENINGITIS ENTEROCOCCAL
     Dosage: 10 MILLIGRAM/KILOGRAM; INITIAL DOSE

REACTIONS (2)
  - Pathogen resistance [Unknown]
  - Off label use [Unknown]
